FAERS Safety Report 9772519 (Version 1)
Quarter: 2013Q4

REPORT INFORMATION
  Report Type: Spontaneous
  Country: US (occurrence: US)
  Receive Date: 20131219
  Receipt Date: 20131219
  Transmission Date: 20140711
  Serious: No
  Sender: FDA-Public Use
  Company Number: US-TEVA-452172USA

PATIENT
  Age: 35 Year
  Sex: Female
  Weight: 77.18 kg

DRUGS (3)
  1. PLAN B ONE-STEP [Suspect]
     Indication: POST COITAL CONTRACEPTION
     Dosage: 1.5 MILLIGRAM DAILY;
     Route: 048
     Dates: start: 20131212, end: 20131212
  2. ORTHO TRI-CYCLEN [Concomitant]
     Indication: CONTRACEPTION
     Route: 048
  3. SEROQUEL [Concomitant]
     Indication: DEPRESSION

REACTIONS (1)
  - Menstruation irregular [Recovered/Resolved]
